FAERS Safety Report 7939673-5 (Version None)
Quarter: 2011Q4

REPORT INFORMATION
  Report Type: 
  Country: None (occurrence: None)
  Receive Date: 20111125
  Receipt Date: 20111115
  Transmission Date: 20120403
  Serious: Yes (Other)
  Sender: FDA-Public Use
  Company Number: PHEH2011US009569

PATIENT
  Sex: Female

DRUGS (4)
  1. ZYRTEC [Suspect]
     Dosage: UNK UKN, PRN
  2. ALLEGRA-D 12 HOUR [Concomitant]
     Dosage: UNK UKN, UNK
  3. RECLAST [Suspect]
     Dosage: UNK UKN, UNK
     Route: 042
     Dates: start: 20111020
  4. ALLERGY [Suspect]
     Dosage: UNK UKN, UNK

REACTIONS (1)
  - ASTHMA [None]
